FAERS Safety Report 11403948 (Version 2)
Quarter: 2016Q2

REPORT INFORMATION
  Report Type: Spontaneous
  Country: US (occurrence: US)
  Receive Date: 20150821
  Receipt Date: 20160428
  Transmission Date: 20160815
  Serious: Yes (Hospitalization, Other)
  Sender: FDA-Public Use
  Company Number: US-AMGEN-USASP2015084937

PATIENT
  Age: 67 Year
  Sex: Female

DRUGS (2)
  1. PROLIA [Concomitant]
     Active Substance: DENOSUMAB
     Dosage: UNK
  2. ENBREL [Suspect]
     Active Substance: ETANERCEPT
     Indication: RHEUMATOID ARTHRITIS
     Dosage: 50 MG, QWK
     Route: 058
     Dates: start: 2003

REACTIONS (6)
  - Fall [Unknown]
  - Osteoarthritis [Unknown]
  - Ankle fracture [Unknown]
  - Arthralgia [Unknown]
  - Syncope [Unknown]
  - Aphasia [Unknown]

NARRATIVE: CASE EVENT DATE: 2015
